FAERS Safety Report 4599523-4 (Version None)
Quarter: 2005Q1

REPORT INFORMATION
  Report Type: 
  Country: None (occurrence: None)
  Receive Date: 20050307
  Receipt Date: 20050222
  Transmission Date: 20050727
  Serious: Yes (Death, Hospitalization)
  Sender: FDA-Public Use
  Company Number: US-JNJFOC-20050206211

PATIENT
  Age: 75 Year
  Sex: Male

DRUGS (12)
  1. HALDOL [Suspect]
  2. HALDOL [Suspect]
     Indication: DRUG USE FOR UNKNOWN INDICATION
  3. ATIVAN [Concomitant]
  4. ATIVAN [Concomitant]
     Indication: DEPRESSION
     Dosage: AS NEEDED
  5. HYDROCODONE [Concomitant]
     Indication: PAIN
  6. ATENALOL [Concomitant]
     Dosage: DRUG TAKEN FOR MANY YEARS
  7. DIGOXIN [Concomitant]
  8. PRINIVEL [Concomitant]
     Indication: BLOOD PRESSURE
  9. ZOCOR [Concomitant]
     Dosage: ON IT FOR SEVERAL YEARS
  10. ASPIRIN [Concomitant]
     Dosage: ON SEVERAL YEARS
  11. TERAZOL 7 [Concomitant]
  12. NORVASC [Concomitant]

REACTIONS (4)
  - CONVULSION [None]
  - LYMPHOMA [None]
  - MEDICATION ERROR [None]
  - TRANSFUSION REACTION [None]
